FAERS Safety Report 23451302 (Version 3)
Quarter: 2024Q1

REPORT INFORMATION
  Report Type: Report from Study
  Country: JP (occurrence: JP)
  Receive Date: 20240129
  Receipt Date: 20240206
  Transmission Date: 20240410
  Serious: Yes (Other)
  Sender: FDA-Public Use
  Company Number: JP-PFIZER INC-PV202400010330

PATIENT
  Age: 7 Year
  Sex: Male
  Weight: 28.2 kg

DRUGS (5)
  1. SIROLIMUS [Suspect]
     Active Substance: SIROLIMUS
     Indication: Lymphangioma
     Dosage: 1 MG, DAILY
     Route: 048
     Dates: start: 20220406, end: 20220708
  2. SIROLIMUS [Suspect]
     Active Substance: SIROLIMUS
     Dosage: 1 MG, DAILY
     Route: 048
     Dates: start: 20220810, end: 20221005
  3. SIROLIMUS [Suspect]
     Active Substance: SIROLIMUS
     Dosage: 1 MG, DAILY
     Route: 048
     Dates: start: 20221109
  4. DEPRODONE PROPIONATE [Concomitant]
     Active Substance: DEPRODONE PROPIONATE
     Indication: Lymphangioma
     Dosage: UNK
     Dates: start: 20221026
  5. KENACORT [Concomitant]
     Active Substance: TRIAMCINOLONE
     Indication: Lymphangioma
     Dosage: UNK
     Dates: start: 20221026

REACTIONS (6)
  - Lymphangioma [Recovering/Resolving]
  - Condition aggravated [Recovering/Resolving]
  - Streptococcal infection [Recovered/Resolved]
  - Infected neoplasm [Recovering/Resolving]
  - Upper respiratory tract inflammation [Recovered/Resolved]
  - Pyrexia [Recovering/Resolving]

NARRATIVE: CASE EVENT DATE: 20220708
